FAERS Safety Report 25939766 (Version 1)
Quarter: 2025Q4

REPORT INFORMATION
  Report Type: Spontaneous
  Country: US (occurrence: US)
  Receive Date: 20251020
  Receipt Date: 20251020
  Transmission Date: 20260118
  Serious: No
  Sender: NOVARTIS
  Company Number: US-002147023-NVSC2025US156050

PATIENT

DRUGS (1)
  1. COSENTYX [Suspect]
     Active Substance: SECUKINUMAB
     Indication: Product used for unknown indication
     Dosage: UNK (FREQUENCY: INJECT 1 PEN UNDER THE SKIN ONCE WEEKLY FOR 5 WEEKS (WEEKS 0, 1,  2, 3, AND 4), THEN
     Route: 065

REACTIONS (4)
  - Drug delivery system malfunction [Unknown]
  - Device issue [Unknown]
  - Incorrect dose administered by device [Unknown]
  - Product leakage [Unknown]

NARRATIVE: CASE EVENT DATE: 20250916
